FAERS Safety Report 5148956-6 (Version None)
Quarter: 2006Q4

REPORT INFORMATION
  Report Type: 
  Country: None (occurrence: None)
  Receive Date: 20061113
  Receipt Date: 20061024
  Transmission Date: 20070319
  Serious: Yes (Hospitalization, Other)
  Sender: FDA-Public Use
  Company Number: TH-BRISTOL-MYERS SQUIBB COMPANY-13555362

PATIENT
  Age: 46 Year
  Sex: Female

DRUGS (13)
  1. ABATACEPT [Suspect]
     Indication: RHEUMATOID ARTHRITIS
     Route: 042
     Dates: start: 20040520
  2. METHOTREXATE [Concomitant]
     Dates: start: 20050811, end: 20061023
  3. SULFASALAZINE [Concomitant]
     Dates: start: 20060519
  4. PREDNISOLONE [Concomitant]
     Dates: start: 20060519
  5. NAPROXEN [Concomitant]
     Dates: start: 20040225
  6. RANITIDINE [Concomitant]
     Dates: start: 20040225, end: 20061023
  7. FOLIC ACID [Concomitant]
     Dates: start: 20040225, end: 20061030
  8. SIMVASTATIN [Concomitant]
     Dates: start: 20040225, end: 20061023
  9. NIFEDIPINE [Concomitant]
     Dates: start: 20040225
  10. METFORMIN [Concomitant]
     Dates: start: 20040225
  11. MINDIAB [Concomitant]
     Dates: start: 20060225
  12. VITAMIN B COMPLEX CAP [Concomitant]
     Dates: start: 20051202, end: 20061023
  13. ACETAMINOPHEN [Concomitant]
     Dates: start: 20051227, end: 20061030

REACTIONS (8)
  - BACTERIA URINE IDENTIFIED [None]
  - BLOOD GLUCOSE INCREASED [None]
  - CULTURE URINE POSITIVE [None]
  - ESCHERICHIA INFECTION [None]
  - HEART RATE INCREASED [None]
  - HEPATIC ENZYME INCREASED [None]
  - PYELONEPHRITIS ACUTE [None]
  - RESPIRATORY RATE INCREASED [None]
